FAERS Safety Report 15190814 (Version 4)
Quarter: 2020Q2

REPORT INFORMATION
  Report Type: Spontaneous
  Country: US (occurrence: US)
  Receive Date: 20180724
  Receipt Date: 20200519
  Transmission Date: 20200713
  Serious: Yes (Hospitalization, Other)
  Sender: FDA-Public Use
  Company Number: US-SAKK-2018SA199405AA

PATIENT
  Age: 18 Year
  Sex: Male

DRUGS (1)
  1. FABRAZYME [Suspect]
     Active Substance: AGALSIDASE BETA
     Indication: FABRY^S DISEASE
     Dosage: 35 MG/5 MG QOW
     Route: 042
     Dates: start: 20151112

REACTIONS (12)
  - Corneal opacity [Unknown]
  - Temperature intolerance [Unknown]
  - Muscular weakness [Unknown]
  - Varicose vein [Unknown]
  - Abdominal pain upper [Unknown]
  - Burning sensation [Unknown]
  - Pain in extremity [Unknown]
  - Deafness [Unknown]
  - Vomiting [Unknown]
  - Paraesthesia [Unknown]
  - Product dose omission [Unknown]
  - Nausea [Unknown]
